FAERS Safety Report 9201795 (Version 1)
Quarter: 2013Q2

REPORT INFORMATION
  Report Type: Spontaneous
  Country: DE (occurrence: DE)
  Receive Date: 20130401
  Receipt Date: 20130401
  Transmission Date: 20140414
  Serious: Yes (Life-Threatening, Hospitalization)
  Sender: FDA-Public Use
  Company Number: DE-ASTRAZENECA-2013SE20259

PATIENT
  Sex: Female

DRUGS (2)
  1. BRILIQUE [Suspect]
     Route: 048
     Dates: start: 201302
  2. BETA BLOCKER [Concomitant]
     Route: 048

REACTIONS (2)
  - Cardiac arrest [Unknown]
  - Rhythm idioventricular [Unknown]
